FAERS Safety Report 24971759 (Version 3)
Quarter: 2025Q1

REPORT INFORMATION
  Report Type: Report from Study
  Country: FR (occurrence: FR)
  Receive Date: 20250214
  Receipt Date: 20250320
  Transmission Date: 20250408
  Serious: Yes (Other)
  Sender: PFIZER
  Company Number: FR-ROCHE-10000172173

PATIENT
  Age: 74 Year
  Sex: Female
  Weight: 67 kg

DRUGS (29)
  1. DOXORUBICIN HYDROCHLORIDE [Suspect]
     Active Substance: DOXORUBICIN HYDROCHLORIDE
     Indication: Diffuse large B-cell lymphoma
     Dosage: ON 12-DEC-2024, SHE RECEIVED MOST RECENT DOSE OF DOXORUBICIN PRIOR TO AE
     Route: 042
     Dates: start: 20240917
  2. METHYLPREDNISOLONE SODIUM SUCCINATE [Suspect]
     Active Substance: METHYLPREDNISOLONE SODIUM SUCCINATE
     Indication: Diffuse large B-cell lymphoma
     Dosage: ON 16-DEC-2024, SHE RECEIVED MOST RECENT DOSE OF PREDNISONE PRIOR TO AE
     Route: 042
     Dates: start: 20240917
  3. RITUXIMAB [Suspect]
     Active Substance: RITUXIMAB
     Dosage: ON 12-DEC-2024, SHE RECEIVED MOST RECENT DOSE OF STUDY DRUG PRIOR TO AE
     Route: 042
     Dates: start: 20240917
  4. CYCLOPHOSPHAMIDE [Suspect]
     Active Substance: CYCLOPHOSPHAMIDE
     Indication: Diffuse large B-cell lymphoma
     Dosage: ON 12-DEC-2024, SHE RECEIVED MOST RECENT DOSE OF CYCLOPHOSPHAMIDE PRIOR TO AE
     Route: 042
     Dates: start: 20240917
  5. GLOFITAMAB [Suspect]
     Active Substance: GLOFITAMAB
     Indication: Diffuse large B-cell lymphoma
     Dosage: 2.5 MG, EVERY 3 WEEKS
     Route: 042
     Dates: start: 20241015
  6. POLATUZUMAB VEDOTIN [Suspect]
     Active Substance: POLATUZUMAB VEDOTIN
     Indication: Diffuse large B-cell lymphoma
     Dosage: 124 MG, EVERY 3 WEEKS
     Route: 042
     Dates: start: 20240917
  7. TAHOR [Concomitant]
     Active Substance: ATORVASTATIN CALCIUM
     Route: 048
  8. LANSOPRAZOLE [Concomitant]
     Active Substance: LANSOPRAZOLE
     Dosage: 30 MG, 1X/DAY
     Route: 048
  9. SYMBICORT [Concomitant]
     Active Substance: BUDESONIDE\FORMOTEROL FUMARATE DIHYDRATE
     Dosage: 400 UG, 1X/DAY
     Route: 055
  10. PRAZEPAM [Concomitant]
     Active Substance: PRAZEPAM
     Indication: Prophylaxis
     Dosage: GIVEN FOR PROPHYLAXIS IS YES
     Route: 048
  11. POLARAMINE [Concomitant]
     Active Substance: DEXCHLORPHENIRAMINE MALEATE
     Dosage: 5 MG, EVERY 3 WEEKS
     Route: 042
     Dates: start: 20240917, end: 20241231
  12. POLARAMINE [Concomitant]
     Active Substance: DEXCHLORPHENIRAMINE MALEATE
     Dosage: 5 MG, EVERY 3 WEEKS
     Route: 042
     Dates: start: 20241105, end: 20250107
  13. ACETAMINOPHEN [Concomitant]
     Active Substance: ACETAMINOPHEN
     Dosage: 1 G, EVERY 3 WEEKS
     Route: 048
     Dates: start: 20240917, end: 20241231
  14. ACETAMINOPHEN [Concomitant]
     Active Substance: ACETAMINOPHEN
     Dosage: 1 G, EVERY 3 WEEKS
     Route: 048
     Dates: start: 20241105, end: 20250107
  15. ONDANSETRON [Concomitant]
     Active Substance: ONDANSETRON
     Dosage: 8 MG, EVERY 3 WEEKS
     Route: 042
     Dates: start: 20240917, end: 20241231
  16. BACTRIM [Concomitant]
     Active Substance: SULFAMETHOXAZOLE\TRIMETHOPRIM
     Indication: Prophylaxis
     Dosage: DRUG DOSE FIRST ADMINISTERED IS 1 TABLET GIVEN FOR PROPHYLAXIS IS YES
     Route: 048
     Dates: start: 20240818
  17. VALACYCLOVIR HYDROCHLORIDE [Concomitant]
     Active Substance: VALACYCLOVIR HYDROCHLORIDE
     Indication: Prophylaxis
     Dosage: DRUG DOSE FIRST ADMINISTERED IS 2 TABLET GIVEN FOR PROPHYLAXIS IS YES
     Route: 048
     Dates: start: 20240918
  18. DEXAMETHASONE [Concomitant]
     Active Substance: DEXAMETHASONE
     Dosage: 20 MG, EVERY 3 WEEKS
     Route: 042
     Dates: start: 20241105, end: 20241128
  19. DEXAMETHASONE [Concomitant]
     Active Substance: DEXAMETHASONE
     Dosage: 20 MG, 1X/DAY
     Route: 042
     Dates: start: 20241128, end: 20241128
  20. DEXAMETHASONE [Concomitant]
     Active Substance: DEXAMETHASONE
     Dosage: 100 MG, 1X/DAY
     Route: 042
     Dates: start: 20241219, end: 20241219
  21. EPREX [Concomitant]
     Active Substance: ERYTHROPOIETIN
     Indication: Anaemia
     Dosage: 30000 IU, WEEKLY
     Route: 058
     Dates: start: 20241119
  22. FILGRASTIM [Concomitant]
     Active Substance: FILGRASTIM
     Indication: Prophylaxis
     Dosage: GIVEN FOR PROPHYLAXIS IS YES
     Route: 058
     Dates: start: 20241124, end: 20241129
  23. FILGRASTIM [Concomitant]
     Active Substance: FILGRASTIM
     Dosage: GIVEN FOR PROPHYLAXIS IS YES
     Route: 058
     Dates: start: 20241217, end: 20241219
  24. FILGRASTIM [Concomitant]
     Active Substance: FILGRASTIM
     Dosage: GIVEN FOR PROPHYLAXIS IS YES
     Route: 058
     Dates: start: 20241220, end: 20241230
  25. OFLOXACIN [Concomitant]
     Active Substance: OFLOXACIN
     Route: 048
     Dates: start: 20241125, end: 20241201
  26. INNOHEP [Concomitant]
     Active Substance: TINZAPARIN SODIUM
     Indication: Prophylaxis
     Dosage: GIVEN FOR PROPHYLAXIS IS YES
     Route: 058
     Dates: start: 20241210, end: 20241225
  27. PIPERACILLIN SODIUM\TAZOBACTAM SODIUM [Concomitant]
     Active Substance: PIPERACILLIN SODIUM\TAZOBACTAM SODIUM
     Dosage: 16 G, 1X/DAY
     Route: 042
     Dates: start: 20241218, end: 20241225
  28. AUGMENTIN [Concomitant]
     Active Substance: AMOXICILLIN\CLAVULANATE POTASSIUM
     Indication: Lung disorder
     Route: 048
     Dates: start: 20241125, end: 20241201
  29. AUGMENTIN [Concomitant]
     Active Substance: AMOXICILLIN\CLAVULANATE POTASSIUM
     Route: 048
     Dates: start: 20241207, end: 20241216

REACTIONS (1)
  - Febrile neutropenia [Recovered/Resolved]

NARRATIVE: CASE EVENT DATE: 20241220
